FAERS Safety Report 13131796 (Version 1)
Quarter: 2017Q1

REPORT INFORMATION
  Report Type: Spontaneous
  Country: US (occurrence: US)
  Receive Date: 20170119
  Receipt Date: 20170119
  Transmission Date: 20170428
  Serious: Yes (Other)
  Sender: FDA-Public Use
  Company Number: US-TEVA-731464USA

PATIENT
  Age: 48 Year
  Sex: Female
  Weight: 77 kg

DRUGS (2)
  1. HYDROCODONE BITARTRATE AND ACETAMINOPHEN [Suspect]
     Active Substance: ACETAMINOPHEN\HYDROCODONE BITARTRATE
     Route: 065
  2. ARMOUR THYROID [Interacting]
     Active Substance: THYROID, PORCINE
     Route: 065

REACTIONS (8)
  - Drug interaction [Unknown]
  - Wrong technique in product usage process [Unknown]
  - Headache [Unknown]
  - Adverse event [Unknown]
  - Nausea [Unknown]
  - Adverse drug reaction [Unknown]
  - Poisoning [Unknown]
  - Anxiety [Unknown]

NARRATIVE: CASE EVENT DATE: 20161117
